FAERS Safety Report 4491922-4 (Version None)
Quarter: 2004Q4

REPORT INFORMATION
  Report Type: 
  Country: None (occurrence: None)
  Receive Date: 20041029
  Receipt Date: 20041029
  Transmission Date: 20050328
  Serious: Yes (Other)
  Sender: FDA-Public Use
  Company Number: None

PATIENT
  Age: 28 Year
  Sex: Female
  Weight: 95.2554 kg

DRUGS (2)
  1. PAXIL CR [Suspect]
     Indication: DEPRESSION
     Dosage: 12.5 MG ONCE A DAY ORAL
     Route: 048
     Dates: start: 20020909, end: 20041028
  2. PAXIL CR [Suspect]
     Indication: GENERALISED ANXIETY DISORDER
     Dosage: 12.5 MG ONCE A DAY ORAL
     Route: 048
     Dates: start: 20020909, end: 20041028

REACTIONS (3)
  - DRUG DEPENDENCE [None]
  - MIGRAINE [None]
  - VERTIGO [None]
